FAERS Safety Report 8586805-4 (Version None)
Quarter: 2012Q3

REPORT INFORMATION
  Report Type: 
  Country: None (occurrence: None)
  Receive Date: 20120810
  Receipt Date: 20100930
  Transmission Date: 20120928
  Serious: No
  Sender: FDA-Public Use
  Company Number: US-009507513-2010SP047367

PATIENT

DRUGS (11)
  1. MIRALAX [Suspect]
     Indication: OBSTRUCTION
     Dosage: UNK UNK, UNKNOWN
     Route: 048
     Dates: start: 20100815
  2. MIRALAX [Suspect]
     Indication: MEDICAL OBSERVATION
     Dosage: UNK UNK, UNKNOWN
     Route: 048
     Dates: start: 20100818
  3. SODIUM PHOSPHATE, DIBASIC (+) SODIUM PHOSPHATE, MONOBASIC [Concomitant]
     Dates: start: 20100827
  4. METAMUCIL-2 [Concomitant]
  5. MIRALAX [Suspect]
     Indication: CONSTIPATION
     Dosage: UNK UNK, UNKNOWN
     Route: 048
     Dates: start: 20100812, end: 20100813
  6. MIRALAX [Suspect]
     Dosage: UNK UNK, UNKNOWN
     Route: 048
     Dates: start: 20100825, end: 20100826
  7. MIRALAX [Suspect]
     Dosage: UNK UNK, UNKNOWN
     Route: 048
     Dates: start: 20100828
  8. MIRALAX [Suspect]
     Dosage: UNK UNK, UNKNOWN
     Route: 048
     Dates: start: 20100701
  9. MIRALAX [Suspect]
     Dosage: UNK UNK, UNKNOWN
     Route: 048
     Dates: start: 20100823
  10. BENEFIBER [Concomitant]
  11. ALLEGRA [Concomitant]

REACTIONS (7)
  - DRY MOUTH [None]
  - CONSTIPATION [None]
  - OFF LABEL USE [None]
  - UNDERDOSE [None]
  - DYSGEUSIA [None]
  - PRURITUS [None]
  - DIARRHOEA [None]
